FAERS Safety Report 24324710 (Version 1)
Quarter: 2024Q3

REPORT INFORMATION
  Report Type: Spontaneous
  Country: FR (occurrence: FR)
  Receive Date: 20240916
  Receipt Date: 20240916
  Transmission Date: 20241017
  Serious: Yes (Other)
  Sender: PFIZER
  Company Number: None

PATIENT
  Age: 63 Year
  Sex: Male
  Weight: 74 kg

DRUGS (4)
  1. CYTARABINE [Suspect]
     Active Substance: CYTARABINE
     Indication: Acute myeloid leukaemia
     Dosage: 82 MG, SINGLE
     Route: 042
     Dates: start: 20240613, end: 20240620
  2. MORPHINE [Suspect]
     Active Substance: MORPHINE
     Indication: Pain
     Dosage: 0.5 MG; FREQ:1 H.
     Route: 051
     Dates: start: 20240611, end: 20240619
  3. NEFOPAM [Suspect]
     Active Substance: NEFOPAM
     Indication: Pain
     Dosage: 20 MG, FREQ:4 H.
     Route: 042
     Dates: start: 20240615, end: 20240620
  4. FUROSEMIDE [Suspect]
     Active Substance: FUROSEMIDE
     Indication: Transfusion
     Dosage: 40 MG, FREQ:2 {TOTAL}.
     Route: 042
     Dates: start: 20240616, end: 20240621

REACTIONS (1)
  - Hepatic cytolysis [Recovered/Resolved]

NARRATIVE: CASE EVENT DATE: 20240620
